FAERS Safety Report 12761937 (Version 1)
Quarter: 2016Q3

REPORT INFORMATION
  Report Type: Spontaneous
  Country: US (occurrence: US)
  Receive Date: 20160920
  Receipt Date: 20160920
  Transmission Date: 20161109
  Serious: No
  Sender: FDA-Public Use
  Company Number: US-ELI_LILLY_AND_COMPANY-US201609003966

PATIENT
  Sex: Male

DRUGS (6)
  1. PRILOSEC [Concomitant]
     Active Substance: OMEPRAZOLE MAGNESIUM
  2. ATARAX [Concomitant]
     Active Substance: HYDROXYZINE\HYDROXYZINE HYDROCHLORIDE
  3. LISINOPRIL. [Concomitant]
     Active Substance: LISINOPRIL
  4. VOLTAREN [Concomitant]
     Active Substance: DICLOFENAC SODIUM
  5. BABY ASPIRIN [Concomitant]
     Active Substance: ASPIRIN
  6. TALTZ [Suspect]
     Active Substance: IXEKIZUMAB
     Indication: PSORIASIS
     Dosage: UNK
     Route: 065
     Dates: start: 20160328

REACTIONS (2)
  - Injection site mass [Unknown]
  - Drug dose omission [Unknown]
